FAERS Safety Report 25401313 (Version 1)
Quarter: 2025Q2

REPORT INFORMATION
  Report Type: Spontaneous
  Country: FR (occurrence: FR)
  Receive Date: 20250605
  Receipt Date: 20250605
  Transmission Date: 20250717
  Serious: Yes (Other)
  Sender: TEVA
  Company Number: None

PATIENT
  Age: 0 Year
  Sex: Female
  Weight: 2.73 kg

DRUGS (5)
  1. PROPRANOLOL [Suspect]
     Active Substance: PROPRANOLOL HYDROCHLORIDE
     Indication: Ventricular extrasystoles
     Dosage: 20 MG MORNING AND EVENING
     Route: 064
     Dates: end: 20240119
  2. MOXIFLOXACIN HYDROCHLORIDE [Suspect]
     Active Substance: MOXIFLOXACIN HYDROCHLORIDE
     Indication: Mycoplasma test positive
     Dosage: THE MORNING
     Route: 064
     Dates: start: 20230913
  3. AZITHROMYCIN [Suspect]
     Active Substance: AZITHROMYCIN
     Indication: Mycoplasma test positive
     Route: 064
     Dates: start: 20230822, end: 20230822
  4. BETAMETHASONE [Suspect]
     Active Substance: BETAMETHASONE
     Indication: Threatened labour
     Route: 064
     Dates: start: 20231117, end: 20231117
  5. ATOSIBAN [Suspect]
     Active Substance: ATOSIBAN
     Indication: Threatened labour
     Route: 064
     Dates: start: 20231116, end: 20231116

REACTIONS (4)
  - Foetal heart rate deceleration abnormality [Recovered/Resolved]
  - Maternal exposure during pregnancy [Recovered/Resolved]
  - Term birth [Recovered/Resolved]
  - Normal newborn [Recovered/Resolved]

NARRATIVE: CASE EVENT DATE: 20231117
